FAERS Safety Report 6085817-2 (Version None)
Quarter: 2009Q1

REPORT INFORMATION
  Report Type: 
  Country: None (occurrence: None)
  Receive Date: 20090220
  Receipt Date: 20090213
  Transmission Date: 20090719
  Serious: Yes (Congenital Anomaly)
  Sender: FDA-Public Use
  Company Number: A0747567A

PATIENT

DRUGS (7)
  1. PAXIL [Suspect]
     Indication: ANXIETY
     Dates: start: 19990101, end: 20000601
  2. AMOXICILLIN [Concomitant]
     Dosage: 500MG THREE TIMES PER DAY
     Dates: start: 20000403
  3. CENTRUM VITAMINS [Concomitant]
  4. ALBUTEROL [Concomitant]
  5. PREDNISONE [Concomitant]
     Dosage: 40MG PER DAY
  6. ZITHROMAX [Concomitant]
  7. METRONIDAZOLE [Concomitant]
     Dates: start: 20000601

REACTIONS (4)
  - ATRIAL SEPTAL DEFECT [None]
  - DEVELOPMENTAL DELAY [None]
  - DRUG EXPOSURE DURING PREGNANCY [None]
  - VENTRICULAR SEPTAL DEFECT [None]
